FAERS Safety Report 16453130 (Version 1)
Quarter: 2019Q2

REPORT INFORMATION
  Report Type: Report from Study
  Country: PK (occurrence: PK)
  Receive Date: 20190619
  Receipt Date: 20190619
  Transmission Date: 20190711
  Serious: Yes (Death)
  Sender: FDA-Public Use
  Company Number: PHHY2019PK139968

PATIENT
  Age: 60 Year
  Sex: Female
  Weight: 65 kg

DRUGS (1)
  1. AFINITOR [Suspect]
     Active Substance: EVEROLIMUS
     Indication: BREAST CANCER
     Dosage: 5 MG, QD
     Route: 048
     Dates: start: 20180207

REACTIONS (1)
  - Death [Fatal]

NARRATIVE: CASE EVENT DATE: 20180529
